FAERS Safety Report 15568122 (Version 2)
Quarter: 2018Q4

REPORT INFORMATION
  Report Type: Spontaneous
  Country: US (occurrence: US)
  Receive Date: 20181030
  Receipt Date: 20181214
  Transmission Date: 20190205
  Serious: Yes (Hospitalization, Other)
  Sender: FDA-Public Use
  Company Number: US-ASTRAZENECA-2018SF41787

PATIENT
  Age: 29633 Day
  Sex: Female
  Weight: 59.2 kg

DRUGS (10)
  1. HYDROMORPHONE [Concomitant]
     Active Substance: HYDROMORPHONE
  2. MORPHINE SULPHATE ER [Concomitant]
  3. LISINOPRIL. [Suspect]
     Active Substance: LISINOPRIL
     Route: 048
  4. ASPIRIN. [Concomitant]
     Active Substance: ASPIRIN
  5. PRAVASTATIN. [Concomitant]
     Active Substance: PRAVASTATIN
  6. MOVANTIK [Suspect]
     Active Substance: NALOXEGOL OXALATE
     Indication: CONSTIPATION
     Route: 048
  7. ISOSORBIDE MONONITRATE. [Concomitant]
     Active Substance: ISOSORBIDE MONONITRATE
  8. PANTOPRAZOLE [Concomitant]
     Active Substance: PANTOPRAZOLE
  9. MOVANTIK [Suspect]
     Active Substance: NALOXEGOL OXALATE
     Indication: CONSTIPATION
     Route: 048
  10. NITROSTAT [Concomitant]
     Active Substance: NITROGLYCERIN

REACTIONS (10)
  - Colitis ischaemic [Recovered/Resolved]
  - Reactive gastropathy [Unknown]
  - Nausea [Unknown]
  - Early satiety [Unknown]
  - Constipation [Unknown]
  - Diverticulum intestinal [Unknown]
  - Lipase increased [Unknown]
  - Large intestine polyp [Unknown]
  - Colitis [Unknown]
  - Vomiting [Unknown]

NARRATIVE: CASE EVENT DATE: 20181013
